FAERS Safety Report 12546654 (Version 2)
Quarter: 2017Q2

REPORT INFORMATION
  Report Type: Spontaneous
  Country: US (occurrence: US)
  Receive Date: 20160711
  Receipt Date: 20170526
  Transmission Date: 20170830
  Serious: No
  Sender: FDA-Public Use
  Company Number: US-TEVA-669162USA

PATIENT
  Age: 64 Year
  Sex: Female

DRUGS (1)
  1. ACTIQ [Suspect]
     Active Substance: FENTANYL CITRATE
     Indication: PAIN
     Route: 048

REACTIONS (1)
  - Pain [Unknown]

NARRATIVE: CASE EVENT DATE: 201606
